FAERS Safety Report 23355012 (Version 1)
Quarter: 2024Q1

REPORT INFORMATION
  Report Type: Spontaneous
  Country: US (occurrence: US)
  Receive Date: 20240101
  Receipt Date: 20240101
  Transmission Date: 20240410
  Serious: No
  Sender: FDA-Public Use
  Company Number: US-GLAXOSMITHKLINE-USCH2023066863

PATIENT

DRUGS (2)
  1. NICORETTE WHITE ICE MINT [Suspect]
     Active Substance: NICOTINE
     Indication: Product used for unknown indication
     Dosage: UNK
  2. NICORETTE WHITE ICE MINT [Suspect]
     Active Substance: NICOTINE
     Dosage: UNK (BREAKING THEM IN HALF)

REACTIONS (2)
  - Abdominal discomfort [Unknown]
  - Incorrect dose administered [Unknown]
